FAERS Safety Report 9479639 (Version 1)
Quarter: 2013Q3

REPORT INFORMATION
  Report Type: Spontaneous
  Country: BR (occurrence: BR)
  Receive Date: 20130827
  Receipt Date: 20130827
  Transmission Date: 20140515
  Serious: Yes (Life-Threatening, Other)
  Sender: FDA-Public Use
  Company Number: PHHY2013BR092573

PATIENT
  Sex: Female

DRUGS (1)
  1. ONBREZ [Suspect]
     Dosage: UNK UKN, UNK

REACTIONS (7)
  - Apparent death [Unknown]
  - Anaphylactic shock [Unknown]
  - Protrusion tongue [Unknown]
  - Constipation [Unknown]
  - Tongue discolouration [Unknown]
  - Flatulence [Unknown]
  - Drooling [Unknown]
